FAERS Safety Report 9790675 (Version 2)
Quarter: 2014Q1

REPORT INFORMATION
  Report Type: Spontaneous
  Country: IT (occurrence: IT)
  Receive Date: 20131231
  Receipt Date: 20140220
  Transmission Date: 20141002
  Serious: Yes (Hospitalization)
  Sender: FDA-Public Use
  Company Number: IT-BRISTOL-MYERS SQUIBB COMPANY-19935832

PATIENT
  Age: 78 Year
  Sex: Female

DRUGS (5)
  1. COUMADIN TABS 5 MG [Suspect]
     Indication: ATRIAL FIBRILLATION
     Dosage: INTER ON 22NOV13
     Route: 048
  2. AMIODARONE [Interacting]
     Indication: ATRIAL FIBRILLATION
     Route: 048
     Dates: end: 20131122
  3. ETORICOXIB [Interacting]
     Indication: BACK PAIN
     Dates: start: 20131119, end: 20131122
  4. LOSARTAN [Concomitant]
     Indication: HYPERTENSION
     Route: 048
  5. HYDROCHLOROTHIAZIDE [Concomitant]
     Indication: HYPERTENSION
     Route: 048

REACTIONS (5)
  - Gastric ulcer [Recovering/Resolving]
  - Anaemia [Recovering/Resolving]
  - Drug interaction [Unknown]
  - Melaena [Recovering/Resolving]
  - Hypocoagulable state [Recovering/Resolving]
